FAERS Safety Report 19148949 (Version 1)
Quarter: 2021Q2

REPORT INFORMATION
  Report Type: Spontaneous
  Country: US (occurrence: US)
  Receive Date: 20210417
  Receipt Date: 20210417
  Transmission Date: 20210717
  Serious: No
  Sender: FDA-Public Use
  Company Number: US-ORGANON-O2104USA000139

PATIENT
  Sex: Female
  Weight: 131.07 kg

DRUGS (2)
  1. NEXPLANON [Suspect]
     Active Substance: ETONOGESTREL
     Dosage: 68 MG (1 IMPLANT), ONCE
     Route: 059
     Dates: start: 202012, end: 20210121
  2. NEXPLANON [Suspect]
     Active Substance: ETONOGESTREL
     Dosage: 68 MG (1 IMPLANT), ONCE
     Route: 059
     Dates: start: 20210121

REACTIONS (6)
  - Implant site inflammation [Not Recovered/Not Resolved]
  - Implant site discharge [Not Recovered/Not Resolved]
  - Implant site erythema [Not Recovered/Not Resolved]
  - Implant site inflammation [Not Recovered/Not Resolved]
  - Implant site discharge [Not Recovered/Not Resolved]
  - Implant site erythema [Not Recovered/Not Resolved]

NARRATIVE: CASE EVENT DATE: 2021
